FAERS Safety Report 26156495 (Version 1)
Quarter: 2025Q4

REPORT INFORMATION
  Report Type: Spontaneous
  Country: US (occurrence: US)
  Receive Date: 20251215
  Receipt Date: 20251215
  Transmission Date: 20260117
  Serious: No
  Sender: STRIDES
  Company Number: US-STRIDES ARCOLAB LIMITED-2025SP014346

PATIENT
  Age: 68 Year
  Sex: Male

DRUGS (3)
  1. MYCOPHENOLATE MOFETIL [Suspect]
     Active Substance: MYCOPHENOLATE MOFETIL
     Indication: Polymyositis
     Dosage: RECEIVED FOR MORE THAN 5 YEAR
     Route: 065
  2. RITUXIMAB [Suspect]
     Active Substance: RITUXIMAB
     Indication: Polymyositis
     Dosage: INFUSION, INITIAL TWO DOSES SEPARATED BY 2 TO 4 WEEKS
     Route: 042
  3. RITUXIMAB [Suspect]
     Active Substance: RITUXIMAB
     Dosage: EVERY 4 TO 6 MONTHS
     Route: 042

REACTIONS (2)
  - B-lymphocyte count decreased [Recovering/Resolving]
  - Off label use [Unknown]
